FAERS Safety Report 13795131 (Version 1)
Quarter: 2017Q3

REPORT INFORMATION
  Report Type: Spontaneous
  Country: GB (occurrence: GB)
  Receive Date: 20170726
  Receipt Date: 20170726
  Transmission Date: 20171127
  Serious: Yes (Other)
  Sender: FDA-Public Use
  Company Number: GB-ACCORD-056082

PATIENT
  Age: 71 Year
  Sex: Female
  Weight: 79 kg

DRUGS (10)
  1. CLOPIDOGREL [Suspect]
     Active Substance: CLOPIDOGREL BISULFATE
     Indication: PRODUCT USED FOR UNKNOWN INDICATION
     Dates: start: 20161205
  2. METFORMIN [Concomitant]
     Active Substance: METFORMIN HYDROCHLORIDE
     Dosage: WITH BREAKFAST AND EVENING MEAL
     Dates: start: 20140520
  3. ACETYLSALICYLIC ACID [Concomitant]
     Active Substance: ASPIRIN
     Dates: start: 20170626
  4. METHOTREXATE. [Concomitant]
     Active Substance: METHOTREXATE
     Dates: start: 20140520
  5. CANDESARTAN. [Concomitant]
     Active Substance: CANDESARTAN
     Dates: start: 20140520
  6. GLICLAZIDE [Concomitant]
     Active Substance: GLICLAZIDE
     Dosage: WITH BREAKFAST
     Dates: start: 20170111
  7. FOLIC ACID. [Concomitant]
     Active Substance: FOLIC ACID
     Dates: start: 20140520
  8. AMLODIPINE [Concomitant]
     Active Substance: AMLODIPINE BESYLATE
     Dates: start: 20160928
  9. DAPAGLIFLOZIN. [Concomitant]
     Active Substance: DAPAGLIFLOZIN
     Dates: start: 20170131
  10. FLUCONAZOLE. [Concomitant]
     Active Substance: FLUCONAZOLE
     Dates: start: 20170523, end: 20170524

REACTIONS (1)
  - Fatigue [Recovered/Resolved]

NARRATIVE: CASE EVENT DATE: 20170626
